FAERS Safety Report 9376566 (Version 1)
Quarter: 2013Q2

REPORT INFORMATION
  Report Type: Spontaneous
  Country: US (occurrence: None)
  Receive Date: 20130628
  Receipt Date: 20130628
  Transmission Date: 20140414
  Serious: Yes (Hospitalization)
  Sender: FDA-Public Use
  Company Number: None

PATIENT
  Age: 91 Year
  Sex: Female
  Weight: 79.4 kg

DRUGS (1)
  1. RIVAROXABAN [Suspect]
     Route: 048

REACTIONS (1)
  - Haematuria [None]
